FAERS Safety Report 12379006 (Version 2)
Quarter: 2016Q2

REPORT INFORMATION
  Report Type: Spontaneous
  Country: ID (occurrence: ID)
  Receive Date: 20160517
  Receipt Date: 20160525
  Transmission Date: 20160815
  Serious: Yes (Death)
  Sender: FDA-Public Use
  Company Number: ID-B.I. PHARMACEUTICALS,INC./RIDGEFIELD-2016-BI-31684IP

PATIENT
  Age: 59 Year
  Sex: Female

DRUGS (1)
  1. GILOTRIF [Suspect]
     Active Substance: AFATINIB
     Indication: PRODUCT USED FOR UNKNOWN INDICATION
     Dosage: 40 MG
     Route: 048

REACTIONS (7)
  - Metastases to bone [Fatal]
  - Metastases to breast [Fatal]
  - Paronychia [Unknown]
  - Metastases to central nervous system [Fatal]
  - Mucosal inflammation [Unknown]
  - Metastases to neck [Fatal]
  - Rash [Unknown]
